FAERS Safety Report 9597163 (Version 1)
Quarter: 2013Q4

REPORT INFORMATION
  Report Type: Spontaneous
  Country: US (occurrence: US)
  Receive Date: 20131004
  Receipt Date: 20131004
  Transmission Date: 20140711
  Serious: No
  Sender: FDA-Public Use
  Company Number: US-AMGEN-USASP2013017794

PATIENT
  Age: 36 Year
  Sex: Male

DRUGS (3)
  1. ENBREL [Suspect]
     Indication: PSORIASIS
     Dosage: 50 MG, QWK
  2. ENBREL [Suspect]
     Indication: PSORIATIC ARTHROPATHY
  3. VICODIN ES [Concomitant]
     Dosage: 7.5-750

REACTIONS (1)
  - Drug ineffective [Unknown]
